FAERS Safety Report 10993974 (Version 1)
Quarter: 2015Q2

REPORT INFORMATION
  Report Type: Report from Study
  Country: US (occurrence: US)
  Receive Date: 20150407
  Receipt Date: 20150407
  Transmission Date: 20150821
  Serious: Yes (Hospitalization)
  Sender: FDA-Public Use
  Company Number: US-SA-2015SA040039

PATIENT
  Sex: Female

DRUGS (1)
  1. APIDRA [Suspect]
     Active Substance: INSULIN GLULISINE
     Indication: DIABETES MELLITUS
     Route: 065

REACTIONS (4)
  - Sepsis [Unknown]
  - Hyperglycaemia [Unknown]
  - Unevaluable event [Unknown]
  - Muscle spasms [Unknown]

NARRATIVE: CASE EVENT DATE: 201503
